FAERS Safety Report 15603243 (Version 1)
Quarter: 2018Q4

REPORT INFORMATION
  Report Type: Spontaneous
  Country: US (occurrence: US)
  Receive Date: 20181109
  Receipt Date: 20181109
  Transmission Date: 20190205
  Serious: Yes (Life-Threatening, Hospitalization, Disabling, Other)
  Sender: FDA-Public Use
  Company Number: None

PATIENT
  Age: 42 Year
  Sex: Male
  Weight: 103.5 kg

DRUGS (4)
  1. AUGMENTIN [Concomitant]
     Active Substance: AMOXICILLIN\CLAVULANATE POTASSIUM
  2. CLONAZEPAM. [Concomitant]
     Active Substance: CLONAZEPAM
  3. FLUORIDE TOOTHPASTE [Suspect]
     Active Substance: SODIUM FLUORIDE
     Indication: DENTAL PLAQUE
     Dosage: ?          QUANTITY:.85 OUNCE(S);?
     Route: 048
     Dates: start: 20181108, end: 20181109
  4. FLUORIDE TOOTHPASTE [Suspect]
     Active Substance: SODIUM FLUORIDE
     Indication: BREATH ODOUR
     Dosage: ?          QUANTITY:.85 OUNCE(S);?
     Route: 048
     Dates: start: 20181108, end: 20181109

REACTIONS (9)
  - Aphthous ulcer [None]
  - Tachycardia [None]
  - Mydriasis [None]
  - Retching [None]
  - Discomfort [None]
  - Suspected product contamination [None]
  - Insomnia [None]
  - Skin lesion [None]
  - Suspected product tampering [None]

NARRATIVE: CASE EVENT DATE: 20181108
